FAERS Safety Report 9313740 (Version 1)
Quarter: 2013Q2

REPORT INFORMATION
  Report Type: Spontaneous
  Country: US (occurrence: US)
  Receive Date: 20130529
  Receipt Date: 20130529
  Transmission Date: 20140414
  Serious: No
  Sender: FDA-Public Use
  Company Number: US-BIOGENIDEC-2013BI011736

PATIENT
  Sex: Female

DRUGS (2)
  1. AVONEX [Suspect]
     Indication: MULTIPLE SCLEROSIS
     Route: 030
     Dates: start: 20100513, end: 20110701
  2. AVONEX [Suspect]
     Indication: MULTIPLE SCLEROSIS
     Route: 030
     Dates: start: 20120224

REACTIONS (15)
  - Weight decreased [Recovered/Resolved]
  - Gastritis [Recovered/Resolved]
  - Gastric disorder [Recovered/Resolved with Sequelae]
  - Gastroenteritis viral [Recovered/Resolved]
  - Dyspepsia [Recovered/Resolved with Sequelae]
  - Gastrooesophageal reflux disease [Recovered/Resolved with Sequelae]
  - Gastric pH decreased [Recovered/Resolved with Sequelae]
  - Lyme disease [Unknown]
  - Off label use [Unknown]
  - Paralysis [Recovered/Resolved]
  - Sleep disorder [Not Recovered/Not Resolved]
  - Adverse event [Unknown]
  - Influenza [Unknown]
  - Insomnia [Recovered/Resolved]
  - Pain [Recovered/Resolved with Sequelae]
